FAERS Safety Report 11127221 (Version 2)
Quarter: 2015Q2

REPORT INFORMATION
  Report Type: Report from Study
  Country: BE (occurrence: BE)
  Receive Date: 20150521
  Receipt Date: 20150612
  Transmission Date: 20150821
  Serious: Yes (Other)
  Sender: FDA-Public Use
  Company Number: BE-TAKEDA-2015MPI003103

PATIENT
  Age: 85 Year

DRUGS (11)
  1. ALGOSTASE [Concomitant]
  2. LOSARTAN [Concomitant]
     Active Substance: LOSARTAN
  3. VELCADE [Suspect]
     Active Substance: BORTEZOMIB
     Dosage: UNK
     Route: 065
     Dates: start: 20150515
  4. METFORMIN [Concomitant]
     Active Substance: METFORMIN HYDROCHLORIDE
  5. VELCADE [Suspect]
     Active Substance: BORTEZOMIB
     Indication: PRODUCT USED FOR UNKNOWN INDICATION
     Dosage: 2.11 MG, UNK
     Route: 065
     Dates: start: 20150430
  6. LITICAN                            /00690801/ [Concomitant]
     Dosage: UNK
     Route: 065
  7. EMCONCOR [Concomitant]
     Active Substance: BISOPROLOL FUMARATE
     Dosage: 5 MG, UNK
  8. SIMVASTATIN. [Concomitant]
     Active Substance: SIMVASTATIN
  9. GLURENORM [Concomitant]
  10. MOVICOL [Concomitant]
     Active Substance: POLYETHYLENE GLYCOL 3350\POTASSIUM CHLORIDE\SODIUM BICARBONATE\SODIUM CHLORIDE
  11. VASEXTEN [Concomitant]
     Active Substance: BARNIDIPINE
     Dosage: 10 MG, UNK

REACTIONS (2)
  - Haemorrhage [Unknown]
  - Malaise [Unknown]
